FAERS Safety Report 6700105-6 (Version None)
Quarter: 2010Q2

REPORT INFORMATION
  Report Type: 
  Country: None (occurrence: None)
  Receive Date: 20100427
  Receipt Date: 20100427
  Transmission Date: 20101027
  Serious: Yes (Life-Threatening, Hospitalization, Disabling)
  Sender: FDA-Public Use
  Company Number: None

PATIENT
  Age: 85 Year
  Sex: Female
  Weight: 55.7924 kg

DRUGS (2)
  1. RAMIPRIL [Suspect]
     Indication: CARDIAC FAILURE
     Dosage: RAMIPRIL 2,5 1/DAY BUCCAL
     Route: 002
     Dates: start: 20100404, end: 20100424
  2. . [Concomitant]

REACTIONS (4)
  - DYSPHAGIA [None]
  - PHARYNGEAL OEDEMA [None]
  - SWOLLEN TONGUE [None]
  - THIRST [None]
